FAERS Safety Report 21454911 (Version 1)
Quarter: 2022Q4

REPORT INFORMATION
  Report Type: Spontaneous
  Country: None (occurrence: JP)
  Receive Date: 20221014
  Receipt Date: 20221014
  Transmission Date: 20230112
  Serious: Yes (Death, Other)
  Sender: FDA-Public Use
  Company Number: JP-Oxford Pharmaceuticals, LLC-2133799

PATIENT
  Sex: Male

DRUGS (3)
  1. SERTRALINE HYDROCHLORIDE [Suspect]
     Active Substance: SERTRALINE HYDROCHLORIDE
     Indication: Product used for unknown indication
  2. PIMOZIDE [Interacting]
     Active Substance: PIMOZIDE
  3. ARIPIPRAZOLE [Interacting]
     Active Substance: ARIPIPRAZOLE

REACTIONS (3)
  - Cardiac arrest [Fatal]
  - Drug interaction [Fatal]
  - Contraindicated product administered [Fatal]
